FAERS Safety Report 11141772 (Version 2)
Quarter: 2016Q2

REPORT INFORMATION
  Report Type: Spontaneous
  Country: US (occurrence: US)
  Receive Date: 20150525
  Receipt Date: 20160608
  Transmission Date: 20160815
  Serious: No
  Sender: FDA-Public Use
  Company Number: US-JNJFOC-20150102617

PATIENT
  Age: 52 Year
  Sex: Male

DRUGS (5)
  1. RISPERDAL CONSTA [Suspect]
     Active Substance: RISPERIDONE
     Indication: DRUG THERAPY
     Route: 030
     Dates: start: 2010, end: 2011
  2. RISPERDAL CONSTA [Suspect]
     Active Substance: RISPERIDONE
     Indication: AGGRESSION
     Route: 030
     Dates: start: 2010, end: 2011
  3. RISPERDAL [Suspect]
     Active Substance: RISPERIDONE
     Indication: PRODUCT USED FOR UNKNOWN INDICATION
     Route: 065
     Dates: start: 20100520, end: 20140430
  4. RISPERDAL CONSTA [Suspect]
     Active Substance: RISPERIDONE
     Indication: IMPULSE-CONTROL DISORDER
     Route: 030
     Dates: start: 2010, end: 2011
  5. RISPERDAL CONSTA [Suspect]
     Active Substance: RISPERIDONE
     Indication: PSYCHOTIC DISORDER
     Route: 030
     Dates: start: 2010, end: 2011

REACTIONS (3)
  - Emotional disorder [Unknown]
  - Blood prolactin increased [Unknown]
  - Gynaecomastia [Unknown]

NARRATIVE: CASE EVENT DATE: 20100520
